FAERS Safety Report 10053706 (Version 1)
Quarter: 2014Q2

REPORT INFORMATION
  Report Type: Spontaneous
  Country: NO (occurrence: NO)
  Receive Date: 20140402
  Receipt Date: 20140402
  Transmission Date: 20141212
  Serious: Yes (Other)
  Sender: FDA-Public Use
  Company Number: PHHY2014NO038592

PATIENT
  Age: 30 Year
  Sex: Female

DRUGS (2)
  1. LEPONEX [Suspect]
     Indication: PSYCHOTIC DISORDER
     Dosage: 100 MG PLUS 200 MG
     Route: 048
     Dates: start: 20121115, end: 20130318
  2. CIPRALEX [Concomitant]
     Indication: DEPRESSION
     Dosage: 20 MG, QD
     Route: 048
     Dates: start: 201301, end: 20130318

REACTIONS (2)
  - Muscle twitching [Recovered/Resolved]
  - Syncope [Recovered/Resolved]
